FAERS Safety Report 4290962-8 (Version None)
Quarter: 2004Q1

REPORT INFORMATION
  Report Type: 
  Country: None (occurrence: None)
  Receive Date: 20040209
  Receipt Date: 20040128
  Transmission Date: 20041129
  Serious: Yes (Hospitalization)
  Sender: FDA-Public Use
  Company Number: 2003119799

PATIENT
  Age: 30 Year
  Sex: Male
  Weight: 68 kg

DRUGS (12)
  1. DIFLUCAN [Suspect]
     Indication: ILL-DEFINED DISORDER
     Dosage: 200 MG DAILY
     Dates: start: 20030703, end: 20030714
  2. MORPHINE [Suspect]
     Indication: CANCER PAIN
     Dosage: 25 MG DAILY , INTRAVENOUS
     Route: 042
     Dates: start: 20031018, end: 20031027
  3. MEXILETINE HYDROCHLORIDE [Suspect]
     Indication: VENTRICULAR TACHYCARDIA
     Dosage: 500 MG (ONCE EVERY 24 HOURS), INTRAVENOUS
     Route: 042
     Dates: start: 20031019, end: 20031108
  4. VERAPAMIL HYDROCHLORIDE [Concomitant]
  5. ARBEKACIN [Concomitant]
  6. CIPROFLOXACIN HYDROCHLORIDE [Concomitant]
  7. GALENIC /PANIPENEM/BETAMIPRON/ [Concomitant]
  8. VANCOMYCIN [Concomitant]
  9. FAMOTIDINE [Concomitant]
  10. THIAMINE HCL [Concomitant]
  11. PLATELETS [Concomitant]
  12. RED BLOOD CELLS [Concomitant]

REACTIONS (11)
  - ARRHYTHMIA [None]
  - ATRIOVENTRICULAR BLOCK SECOND DEGREE [None]
  - CANCER PAIN [None]
  - DRUG EFFECT DECREASED [None]
  - DYSPNOEA [None]
  - NEUTROPENIA [None]
  - PYREXIA [None]
  - RENAL DISORDER [None]
  - STEM CELL TRANSPLANT [None]
  - TACHYCARDIA [None]
  - VENTRICULAR TACHYCARDIA [None]
